FAERS Safety Report 4374007-7 (Version None)
Quarter: 2004Q2

REPORT INFORMATION
  Report Type: 
  Country: None (occurrence: None)
  Receive Date: 20040603
  Receipt Date: 20040519
  Transmission Date: 20050107
  Serious: Yes (Death, Other)
  Sender: FDA-Public Use
  Company Number: GBS040514966

PATIENT
  Sex: Male

DRUGS (1)
  1. OLANZAPINE [Suspect]

REACTIONS (2)
  - CONVULSION [None]
  - EPILEPSY [None]
